FAERS Safety Report 8581961-6 (Version None)
Quarter: 2012Q3

REPORT INFORMATION
  Report Type: 
  Country: None (occurrence: None)
  Receive Date: 20120809
  Receipt Date: 20120730
  Transmission Date: 20120928
  Serious: Yes (Death, Hospitalization)
  Sender: FDA-Public Use
  Company Number: DE-CELGENEUS-062-50794-12070382

PATIENT
  Age: 78 Year
  Sex: Male
  Weight: 115 kg

DRUGS (12)
  1. VIDAZA [Suspect]
     Dosage: 75 MILLIGRAM/SQ. METER
     Route: 058
     Dates: start: 20120612, end: 20120620
  2. LENOGRASTIM [Concomitant]
     Route: 065
     Dates: start: 20120624, end: 20120629
  3. AMIODARONE HCL [Concomitant]
     Route: 065
  4. FORMOTEROL FUMARATE [Concomitant]
     Route: 065
  5. PANTOPRAZOLE [Concomitant]
     Route: 065
  6. TRANSFUSION [Concomitant]
     Route: 065
  7. PLATELETS [Concomitant]
     Route: 065
  8. FENTANYL [Concomitant]
     Route: 062
  9. IMIPRA [Concomitant]
     Route: 065
  10. DEFERASIROX [Concomitant]
     Route: 065
  11. BISOPROLOL FUMARATE [Concomitant]
     Route: 065
  12. PREGABALIN [Concomitant]
     Route: 065

REACTIONS (3)
  - FEBRILE NEUTROPENIA [None]
  - BRONCHITIS [None]
  - PNEUMONIA [None]
